FAERS Safety Report 22267689 (Version 2)
Quarter: 2023Q2

REPORT INFORMATION
  Report Type: Report from Study
  Country: CN (occurrence: None)
  Receive Date: 20230430
  Receipt Date: 20230523
  Transmission Date: 20230721
  Serious: Yes (Hospitalization)
  Sender: FDA-Public Use
  Company Number: CN-ROCHE-3268484

PATIENT
  Age: 62 Year
  Sex: Female
  Weight: 59 kg

DRUGS (6)
  1. PERTUZUMAB [Suspect]
     Active Substance: PERTUZUMAB
     Indication: Breast cancer metastatic
     Dosage: RECEIVED LAST DOSE PRIOR TO EVENT ONSET ON 02-DEC-2022 AND COMPLETED C2D1.
     Route: 042
     Dates: start: 20221215
  2. TRASTUZUMAB [Suspect]
     Active Substance: TRASTUZUMAB
     Indication: Breast cancer metastatic
     Dosage: RECEIVED LAST DOSE PRIOR TO EVENT ONSET ON 13-JAN-2023 AND COMPLETED C2D1.
     Route: 041
     Dates: start: 20221215
  3. TUCATINIB [Suspect]
     Active Substance: TUCATINIB
     Indication: Breast cancer metastatic
     Dosage: LAST DOSE PRIOR TO EVENT ONSET ON 13-JAN-2023 AND COMPLETED CYCLE (C) 2 DAY (D) 1
     Route: 048
     Dates: start: 20221215
  4. SPIRONOLACTONE [Concomitant]
     Active Substance: SPIRONOLACTONE
     Dates: start: 202205
  5. FUROSEMIDE [Concomitant]
     Active Substance: FUROSEMIDE
     Dates: start: 202205
  6. OMEPRAZOLE [Concomitant]
     Active Substance: OMEPRAZOLE
     Dates: start: 202207

REACTIONS (1)
  - Rash papular [Recovered/Resolved]

NARRATIVE: CASE EVENT DATE: 20230113
